FAERS Safety Report 11246439 (Version 1)
Quarter: 2015Q3

REPORT INFORMATION
  Report Type: Spontaneous
  Country: US (occurrence: None)
  Receive Date: 20150706
  Receipt Date: 20150706
  Transmission Date: 20151125
  Serious: Yes (Hospitalization, Other)
  Sender: FDA-Public Use
  Company Number: ADR-2015-01112

PATIENT
  Age: 64 Year
  Sex: Female

DRUGS (20)
  1. LIORESAL [Suspect]
     Active Substance: BACLOFEN
     Indication: MUSCLE SPASTICITY
     Dates: start: 1994, end: 20150522
  2. LEXAPRO [Concomitant]
     Active Substance: ESCITALOPRAM OXALATE
     Route: 048
  3. DITROPAN [Concomitant]
     Active Substance: OXYBUTYNIN CHLORIDE
     Route: 048
  4. CLARITIN [Concomitant]
     Active Substance: LORATADINE
     Route: 048
  5. SILICA [Concomitant]
     Active Substance: SILICON DIOXIDE
     Route: 048
  6. FISH OIL [Concomitant]
     Active Substance: FISH OIL
     Dosage: TAKE 1 TABLET BY MOUTH DAILY?
     Route: 048
  7. FERROUS SULFATE [Concomitant]
     Active Substance: FERROUS SULFATE\FERROUS SULFATE, DRIED
     Route: 048
  8. SYNTHROID [Concomitant]
     Active Substance: LEVOTHYROXINE SODIUM
     Route: 048
  9. MULTIVITAMIN WITH MINERALS [Concomitant]
     Active Substance: MINERALS\VITAMINS
     Dosage: 1 TABLET BY MOUTH DAILY
     Route: 048
  10. VOLTAREN [Concomitant]
     Active Substance: DICLOFENAC SODIUM
     Route: 061
  11. MAALOX ANTACID [Concomitant]
     Active Substance: ALUMINUM HYDROXIDE\DIMETHICONE\MAGNESIUM HYDROXIDE
     Dosage: TAKE BY MOUTH EVERY 6 HOURS AS NEEDED?
     Route: 048
  12. CRANBERRY. [Concomitant]
     Active Substance: CRANBERRY
     Dosage: 1 TABLET BY MOUTH DAILY
     Route: 048
  13. RESTASIS [Concomitant]
     Active Substance: CYCLOSPORINE
  14. GENTAMICIN SULFATE. [Concomitant]
     Active Substance: GENTAMICIN SULFATE
     Dosage: DISP: 30 G, RFL: O?
  15. SIMETHICONE (DIMETHICONE) [Concomitant]
     Active Substance: DIMETHICONE
     Dosage: CHEW 250 MG BY MOUTH EVERY 6 (SIX) HOURS AS NEEDED FOR FLATULENCE?
     Route: 048
  16. VITAMIN D [Concomitant]
     Active Substance: CHOLECALCIFEROL
     Route: 048
  17. LOMOTIL [Concomitant]
     Active Substance: ATROPINE SULFATE\DIPHENOXYLATE HYDROCHLORIDE
     Route: 048
  18. ESTRACE [Concomitant]
     Active Substance: ESTRADIOL
     Route: 048
  19. WELLBUTRIN SR [Concomitant]
     Active Substance: BUPROPION HYDROCHLORIDE
     Route: 048
  20. CORTICOSTEROID [Concomitant]
     Active Substance: CORTICOSTEROID NOS

REACTIONS (6)
  - Asthenia [None]
  - Medical device removal [None]
  - Wound infection [None]
  - Medical device pain [None]
  - Device related infection [None]
  - Abdominal wound dehiscence [None]

NARRATIVE: CASE EVENT DATE: 20150516
